FAERS Safety Report 12736381 (Version 4)
Quarter: 2017Q1

REPORT INFORMATION
  Report Type: Report from Study
  Country: US (occurrence: US)
  Receive Date: 20160912
  Receipt Date: 20170320
  Transmission Date: 20170428
  Serious: Yes (Other)
  Sender: FDA-Public Use
  Company Number: US-JNJFOC-20151005704

PATIENT
  Age: 67 Year
  Sex: Female

DRUGS (22)
  1. GLYBURIDE. [Concomitant]
     Active Substance: GLYBURIDE
  2. BACTRIM [Concomitant]
     Active Substance: SULFAMETHOXAZOLE\TRIMETHOPRIM
  3. IMBRUVICA [Suspect]
     Active Substance: IBRUTINIB
     Indication: NEOPLASM MALIGNANT
     Route: 048
     Dates: start: 20140708
  4. IMBRUVICA [Suspect]
     Active Substance: IBRUTINIB
     Indication: NEOPLASM MALIGNANT
     Route: 048
     Dates: start: 20140714
  5. SYNTHROID [Concomitant]
     Active Substance: LEVOTHYROXINE SODIUM
  6. VITAMIN D [Concomitant]
     Active Substance: CHOLECALCIFEROL
  7. TRADJENTA [Concomitant]
     Active Substance: LINAGLIPTIN
  8. GLIPIZIDE. [Concomitant]
     Active Substance: GLIPIZIDE
  9. LIPITOR [Concomitant]
     Active Substance: ATORVASTATIN CALCIUM
  10. IMBRUVICA [Suspect]
     Active Substance: IBRUTINIB
     Indication: CHRONIC LYMPHOCYTIC LEUKAEMIA
     Route: 048
     Dates: start: 20140708
  11. IMBRUVICA [Suspect]
     Active Substance: IBRUTINIB
     Indication: CHRONIC LYMPHOCYTIC LEUKAEMIA
     Route: 048
     Dates: start: 20160912
  12. ELIQUIS [Suspect]
     Active Substance: APIXABAN
     Indication: ATRIAL FIBRILLATION
     Route: 065
  13. ASPIRIN. [Concomitant]
     Active Substance: ASPIRIN
  14. ZOCOR [Concomitant]
     Active Substance: SIMVASTATIN
  15. GLIMEPIRIDE. [Concomitant]
     Active Substance: GLIMEPIRIDE
  16. LANTUS [Concomitant]
     Active Substance: INSULIN GLARGINE
  17. IMBRUVICA [Suspect]
     Active Substance: IBRUTINIB
     Indication: NEOPLASM MALIGNANT
     Route: 048
     Dates: start: 20160912
  18. ATENOLOL. [Concomitant]
     Active Substance: ATENOLOL
     Indication: HEART RATE INCREASED
     Dates: start: 20151002
  19. IMBRUVICA [Suspect]
     Active Substance: IBRUTINIB
     Indication: CHRONIC LYMPHOCYTIC LEUKAEMIA
     Route: 048
     Dates: start: 20140714
  20. JANUVIA [Concomitant]
     Active Substance: SITAGLIPTIN PHOSPHATE
  21. ZYRTEC [Concomitant]
     Active Substance: CETIRIZINE HYDROCHLORIDE
  22. FISH OIL [Concomitant]
     Active Substance: FISH OIL

REACTIONS (14)
  - Contusion [Unknown]
  - Bacterial infection [Unknown]
  - Onychoclasis [Unknown]
  - Blood count abnormal [Unknown]
  - Arrhythmia [Unknown]
  - Fall [Unknown]
  - Neutrophil count decreased [Recovered/Resolved]
  - Subarachnoid haematoma [Unknown]
  - Atrial fibrillation [Recovered/Resolved]
  - Skin infection [Unknown]
  - Hypoglycaemia [Unknown]
  - Fungal infection [Unknown]
  - Rash [Not Recovered/Not Resolved]
  - Gastroenteritis viral [Unknown]

NARRATIVE: CASE EVENT DATE: 20151003
